FAERS Safety Report 10676450 (Version 1)
Quarter: 2014Q4

REPORT INFORMATION
  Report Type: Spontaneous
  Country: JP (occurrence: JP)
  Receive Date: 20141226
  Receipt Date: 20141226
  Transmission Date: 20150529
  Serious: Yes (Other)
  Sender: FDA-Public Use
  Company Number: JP-CIPLA LTD.-2014JP02913

PATIENT
  Age: 57 Year
  Sex: Female

DRUGS (18)
  1. FLUOROURACIL. [Suspect]
     Active Substance: FLUOROURACIL
     Indication: DISEASE RECURRENCE
  2. FLUOROURACIL. [Suspect]
     Active Substance: FLUOROURACIL
     Indication: METASTASES TO LIVER
  3. LUCOVORIN CALCIUM [Suspect]
     Active Substance: LEUCOVORIN CALCIUM
     Indication: COLON CANCER
     Dosage: UNK
  4. FLUOROURACIL. [Suspect]
     Active Substance: FLUOROURACIL
     Indication: COLON CANCER
     Dosage: UNK
  5. OXALIPLATIN. [Suspect]
     Active Substance: OXALIPLATIN
     Indication: DISEASE RECURRENCE
  6. BEVACIZUMAB [Suspect]
     Active Substance: BEVACIZUMAB
     Indication: COLON CANCER
  7. UFT [Suspect]
     Active Substance: TEGAFUR\URACIL
     Indication: DISEASE RECURRENCE
  8. OXALIPLATIN. [Suspect]
     Active Substance: OXALIPLATIN
     Indication: METASTASES TO LIVER
  9. IRINOTECAN [Suspect]
     Active Substance: IRINOTECAN
     Indication: DISEASE RECURRENCE
  10. IRINOTECAN [Suspect]
     Active Substance: IRINOTECAN
     Indication: METASTASES TO LIVER
  11. LUCOVORIN CALCIUM [Suspect]
     Active Substance: LEUCOVORIN CALCIUM
     Indication: METASTASES TO LIVER
  12. BEVACIZUMAB [Suspect]
     Active Substance: BEVACIZUMAB
     Indication: DISEASE RECURRENCE
  13. IRINOTECAN [Suspect]
     Active Substance: IRINOTECAN
     Indication: COLON CANCER
     Dosage: UNK
     Dates: start: 200212
  14. UFT [Suspect]
     Active Substance: TEGAFUR\URACIL
     Indication: METASTASES TO LIVER
  15. OXALIPLATIN. [Suspect]
     Active Substance: OXALIPLATIN
     Indication: COLON CANCER
     Dosage: UNK
  16. BEVACIZUMAB [Suspect]
     Active Substance: BEVACIZUMAB
     Indication: METASTASES TO LIVER
  17. UFT [Suspect]
     Active Substance: TEGAFUR\URACIL
     Indication: COLON CANCER
     Dosage: UNK
  18. LUCOVORIN CALCIUM [Suspect]
     Active Substance: LEUCOVORIN CALCIUM
     Indication: DISEASE RECURRENCE

REACTIONS (4)
  - Disease recurrence [Recovered/Resolved]
  - Fatigue [Unknown]
  - Neuropathy peripheral [Unknown]
  - Nausea [Unknown]
